FAERS Safety Report 25803950 (Version 1)
Quarter: 2025Q3

REPORT INFORMATION
  Report Type: Spontaneous
  Country: CA (occurrence: CA)
  Receive Date: 20250915
  Receipt Date: 20250915
  Transmission Date: 20251020
  Serious: Yes (Hospitalization, Other)
  Sender: ELITE
  Company Number: CA-ELITEPHARMA-2025ELLIT00197

PATIENT
  Age: 63 Year
  Sex: Female

DRUGS (8)
  1. METHADONE [Suspect]
     Active Substance: METHADONE HYDROCHLORIDE
     Indication: Musculoskeletal chest pain
     Route: 061
  2. HYDROMORPHONE [Suspect]
     Active Substance: HYDROMORPHONE
     Indication: Musculoskeletal chest pain
     Route: 048
  3. HYDROMORPHONE [Suspect]
     Active Substance: HYDROMORPHONE
     Route: 065
  4. MORPHINE [Suspect]
     Active Substance: MORPHINE
     Indication: Musculoskeletal chest pain
     Route: 065
  5. AMITRIPTYLINE [Suspect]
     Active Substance: AMITRIPTYLINE
     Indication: Musculoskeletal chest pain
     Route: 061
  6. KETAMINE [Suspect]
     Active Substance: KETAMINE
     Indication: Musculoskeletal chest pain
     Route: 065
  7. SUFENTANIL [Suspect]
     Active Substance: SUFENTANIL
     Indication: Musculoskeletal chest pain
     Route: 065
  8. TRANEXAMIC ACID [Suspect]
     Active Substance: TRANEXAMIC ACID
     Indication: Musculoskeletal chest pain
     Route: 061

REACTIONS (5)
  - Delirium [Recovering/Resolving]
  - Hallucination [Recovering/Resolving]
  - Confusional state [Recovering/Resolving]
  - Drug ineffective [Unknown]
  - Incorrect product dosage form administered [Unknown]
